FAERS Safety Report 4795009-2 (Version None)
Quarter: 2005Q4

REPORT INFORMATION
  Report Type: 
  Country: None (occurrence: None)
  Receive Date: 20051006
  Receipt Date: 20050920
  Transmission Date: 20060501
  Serious: Yes (Hospitalization)
  Sender: FDA-Public Use
  Company Number: 032-36

PATIENT
  Age: 76 Year
  Sex: Male

DRUGS (1)
  1. TEVETEN [Suspect]
     Indication: HYPERTENSION
     Dosage: 600 MG PO
     Route: 048
     Dates: start: 20041013, end: 20050217

REACTIONS (4)
  - AUTONOMIC NERVOUS SYSTEM IMBALANCE [None]
  - HYPERTENSION [None]
  - LOSS OF CONSCIOUSNESS [None]
  - ORTHOSTATIC HYPOTENSION [None]
